APPROVED DRUG PRODUCT: DIAZEPAM
Active Ingredient: DIAZEPAM
Strength: 50MG/10ML (5MG/ML)
Dosage Form/Route: INJECTABLE;INJECTION
Application: A216422 | Product #001 | TE Code: AP
Applicant: GALENICUM HEALTH SLU
Approved: May 19, 2025 | RLD: No | RS: No | Type: RX